FAERS Safety Report 4914030-4 (Version None)
Quarter: 2006Q1

REPORT INFORMATION
  Report Type: 
  Country: None (occurrence: None)
  Receive Date: 20060216
  Receipt Date: 20060208
  Transmission Date: 20060701
  Serious: Yes (Other)
  Sender: FDA-Public Use
  Company Number: JP-ROCHE-436313

PATIENT
  Age: 85 Year
  Sex: Male

DRUGS (8)
  1. TAMIFLU [Suspect]
     Route: 048
     Dates: start: 20060203, end: 20060205
  2. INSULIN [Concomitant]
     Dosage: ROUTE REPORTED AS INJECTABLE (NOT OTHERWISE SPECIFIED)
     Route: 050
  3. ASPIRIN [Concomitant]
     Route: 048
  4. CEROCRAL [Concomitant]
     Dosage: DOSE FORM REPORTED AS ORAL FORMULATION (NOT OTHERWISE SPECIFIED)
     Route: 048
  5. HARNAL [Concomitant]
     Dosage: DOSE FORM REPORTED AS ORAL FORMULATION (NOT OTHERWISE SPECIFIED)
     Route: 048
  6. PL [Concomitant]
     Route: 048
     Dates: start: 20060131
  7. MEDICON [Concomitant]
     Route: 048
     Dates: start: 20060131
  8. SPARA [Concomitant]
     Route: 048

REACTIONS (2)
  - ABNORMAL BEHAVIOUR [None]
  - DELIRIUM [None]
